FAERS Safety Report 5696215-5 (Version None)
Quarter: 2008Q2

REPORT INFORMATION
  Report Type: 
  Country: None (occurrence: None)
  Receive Date: 20080407
  Receipt Date: 20080327
  Transmission Date: 20081010
  Serious: Yes (Hospitalization)
  Sender: FDA-Public Use
  Company Number: US-PFIZER INC-2008006022

PATIENT
  Sex: Female
  Weight: 54 kg

DRUGS (9)
  1. SU-011,248 [Suspect]
     Indication: BREAST CANCER
     Route: 048
     Dates: start: 20071128, end: 20080101
  2. SU-011,248 [Suspect]
     Dates: start: 20080102, end: 20080114
  3. PACLITAXEL [Suspect]
     Indication: BREAST CANCER
     Route: 042
  4. LORAZEPAM [Concomitant]
     Indication: NAUSEA
  5. OMEPRAZOLE [Concomitant]
  6. PROCHLORPERAZINE [Concomitant]
  7. TICLOPIDINE HYDROCHLORIDE [Concomitant]
  8. ZOLPIDEM [Concomitant]
     Indication: INSOMNIA
  9. NIFEDICAL [Concomitant]

REACTIONS (1)
  - HYPONATRAEMIA [None]
